FAERS Safety Report 9026708 (Version 1)
Quarter: 2012Q4

REPORT INFORMATION
  Report Type: Spontaneous
  Country: US (occurrence: None)
  Receive Date: 20121226
  Receipt Date: 20121226
  Transmission Date: 20130627
  Serious: Yes (Other)
  Sender: FDA-Public Use
  Company Number: 2012034286

PATIENT
  Sex: Female

DRUGS (2)
  1. PRIVIGEN (IMMUNE GLOBULIN INTRAVENOUS (HUMAN) 10% LIQUID) [Suspect]
  2. GAMMAGARD (IMMUNOGLOBULIN HUMAN NORMAL) [Concomitant]

REACTIONS (3)
  - Headache [None]
  - Pharyngitis streptococcal [None]
  - Wrong drug administered [None]
